FAERS Safety Report 16889834 (Version 1)
Quarter: 2019Q4

REPORT INFORMATION
  Report Type: Spontaneous
  Country: ES (occurrence: ES)
  Receive Date: 20191007
  Receipt Date: 20191007
  Transmission Date: 20200122
  Serious: Yes (Hospitalization, Other)
  Sender: FDA-Public Use
  Company Number: ES-AUROBINDO-AUR-APL-2019-065126

PATIENT
  Age: 80 Year
  Sex: Female

DRUGS (10)
  1. MIDAZOLAM [Suspect]
     Active Substance: MIDAZOLAM HYDROCHLORIDE
     Indication: ANAESTHESIA
     Dosage: 1 MILLIGRAM, ONCE A DAY
     Route: 042
     Dates: start: 20130409, end: 20130409
  2. BUPIVACAINE 5 MG/ML [Suspect]
     Active Substance: BUPIVACAINE
     Indication: ANAESTHESIA
     Dosage: 10 MILLIGRAM, TOTAL, BUPIVACA?NA 0,5% 5 MG/ML 2 ML
     Route: 042
     Dates: start: 20130409, end: 20130409
  3. AMLODIPINO [Concomitant]
     Active Substance: AMLODIPINE BESYLATE
     Indication: HYPERTENSION
     Dosage: 10 MILLIGRAM, ONCE A DAY
     Route: 048
  4. PROPOFOL. [Suspect]
     Active Substance: PROPOFOL
     Indication: ANAESTHESIA
     Dosage: 50 MILLIGRAM, ONCE A DAY
     Route: 042
     Dates: start: 20130409, end: 20130409
  5. FENTANILO [Suspect]
     Active Substance: FENTANYL
     Indication: ANAESTHESIA
     Dosage: 60 MICROGRAM, ONCE A DAY
     Route: 042
     Dates: start: 20130409, end: 20130409
  6. VANCOMICINA [Concomitant]
     Active Substance: VANCOMYCIN
     Indication: ANTIBIOTIC PROPHYLAXIS
     Dosage: 1 GRAM, TWO TIMES A DAY
     Route: 042
     Dates: start: 20130409, end: 20130411
  7. PARACETAMOL [Suspect]
     Active Substance: ACETAMINOPHEN
     Indication: PAIN
     Dosage: 1 GRAM, 6 HOUR
     Route: 042
     Dates: start: 20130409, end: 20130415
  8. ATROPINA [Suspect]
     Active Substance: ATROPINE
     Indication: ANAESTHESIA
     Dosage: 0.5 MILLIGRAM, TOTAL
     Route: 042
     Dates: start: 20130409, end: 20130409
  9. INDAPAMIDA [Concomitant]
     Active Substance: INDAPAMIDE
     Indication: HYPERTENSION
     Dosage: 2.5 MILLIGRAM, ONCE A DAY
     Route: 048
     Dates: start: 2003
  10. CLEXANE [Concomitant]
     Active Substance: ENOXAPARIN SODIUM
     Indication: THROMBOSIS PROPHYLAXIS
     Dosage: 40 MILLIGRAM, ONCE A DAY
     Route: 058
     Dates: start: 20130409

REACTIONS (1)
  - Hepatitis [Recovered/Resolved]

NARRATIVE: CASE EVENT DATE: 20130409
